FAERS Safety Report 9331815 (Version 1)
Quarter: 2013Q2

REPORT INFORMATION
  Report Type: Spontaneous
  Country: US (occurrence: None)
  Receive Date: 20130603
  Receipt Date: 20130603
  Transmission Date: 20140414
  Serious: Yes (Other)
  Sender: FDA-Public Use
  Company Number: US-1198460

PATIENT
  Age: 74 Year
  Sex: Male
  Weight: 96.16 kg

DRUGS (4)
  1. BSS INTRAOCULAR SOLUTION (BSS) [Suspect]
     Indication: INTRAOCULAR LENS IMPLANT
     Route: 031
     Dates: start: 20130516
  2. BETADINE [Suspect]
     Route: 047
     Dates: start: 20130516, end: 20130516
  3. VIGAMOX [Suspect]
     Dosage: (INTRAOCULAR)
     Dates: start: 20130516, end: 20130516
  4. LIDOCAINE [Concomitant]

REACTIONS (2)
  - Endophthalmitis [None]
  - Medication error [None]
